FAERS Safety Report 13758126 (Version 1)
Quarter: 2017Q3

REPORT INFORMATION
  Report Type: Spontaneous
  Country: US (occurrence: US)
  Receive Date: 20170717
  Receipt Date: 20170717
  Transmission Date: 20171127
  Serious: No
  Sender: FDA-Public Use
  Company Number: US-GLAXOSMITHKLINE-US2017108261

PATIENT
  Sex: Female

DRUGS (3)
  1. IRBESARTAN. [Concomitant]
     Active Substance: IRBESARTAN
  2. PANTOPRAZOLE [Concomitant]
     Active Substance: PANTOPRAZOLE
  3. BREO ELLIPTA [Suspect]
     Active Substance: FLUTICASONE FUROATE\VILANTEROL TRIFENATATE
     Indication: CHRONIC OBSTRUCTIVE PULMONARY DISEASE
     Dosage: 100/25
     Route: 055
     Dates: start: 20170629

REACTIONS (5)
  - Urinary tract infection [Unknown]
  - Oropharyngeal pain [Not Recovered/Not Resolved]
  - Vulvovaginal pruritus [Recovering/Resolving]
  - Headache [Not Recovered/Not Resolved]
  - Vulvovaginal burning sensation [Recovering/Resolving]
